FAERS Safety Report 20707591 (Version 13)
Quarter: 2022Q4

REPORT INFORMATION
  Report Type: Report from Study
  Country: US (occurrence: US)
  Receive Date: 20220413
  Receipt Date: 20221229
  Transmission Date: 20230113
  Serious: Yes (Hospitalization)
  Sender: FDA-Public Use
  Company Number: US-EXELIXIS-XL18422050686

PATIENT
  Age: 72 Year
  Sex: Male
  Weight: 84.807 kg

DRUGS (27)
  1. CABOZANTINIB [Suspect]
     Active Substance: CABOZANTINIB
     Indication: Hormone-refractory prostate cancer
     Dosage: 40 MG, QD
     Route: 048
     Dates: start: 20220324, end: 20220402
  2. ATEZOLIZUMAB [Suspect]
     Active Substance: ATEZOLIZUMAB
     Indication: Hormone-refractory prostate cancer
     Dosage: 1200 MG, Q3WEEKS
     Route: 042
     Dates: start: 20220324
  3. ATEZOLIZUMAB [Suspect]
     Active Substance: ATEZOLIZUMAB
     Indication: Hormone-refractory prostate cancer
  4. INDOMETHACIN [Concomitant]
     Active Substance: INDOMETHACIN
     Indication: Gout
  5. INDOMETHACIN [Concomitant]
     Active Substance: INDOMETHACIN
     Dates: start: 20220324
  6. LUPRON [Concomitant]
     Active Substance: LEUPROLIDE ACETATE
     Indication: Prostate cancer
     Dosage: UNK
     Dates: start: 20170301
  7. TAMSULOSIN [Concomitant]
     Active Substance: TAMSULOSIN
     Indication: Urinary retention
     Dosage: UNK
     Dates: start: 20161208
  8. ETOMIDATE [Concomitant]
     Active Substance: ETOMIDATE
     Indication: Sedation
     Dates: start: 20220408, end: 20220408
  9. FENTANYL [Concomitant]
     Active Substance: FENTANYL
     Indication: Sedation
     Dates: start: 20220408, end: 20220408
  10. HALDOL [Concomitant]
     Active Substance: HALOPERIDOL
     Indication: Agitation
     Dates: start: 20220406, end: 20220406
  11. HALDOL [Concomitant]
     Active Substance: HALOPERIDOL
     Dates: start: 20220407, end: 20220407
  12. HALDOL [Concomitant]
     Active Substance: HALOPERIDOL
     Dates: start: 20220408, end: 20220408
  13. ISOSOURCE HN [Concomitant]
     Active Substance: AMINO ACIDS\DEXTROSE\ELECTROLYTES NOS\SOYBEAN OIL\VITAMINS
     Dates: start: 20220408
  14. LIDOCAINE [Concomitant]
     Active Substance: LIDOCAINE
     Indication: Back pain
     Dates: start: 20220406
  15. MAGNESIUM SULFATE [Concomitant]
     Active Substance: MAGNESIUM SULFATE
     Dates: start: 20220406, end: 20220406
  16. MELATONIN [Concomitant]
     Active Substance: MELATONIN
     Indication: Insomnia
     Dates: start: 20220407
  17. OLABZAPINE [Concomitant]
     Indication: Agitation
     Dates: start: 20220407, end: 20220407
  18. OLANZAPINE [Concomitant]
     Active Substance: OLANZAPINE
     Indication: Agitation
     Dates: start: 20220407, end: 20220408
  19. PANTOPRAZOLE [Concomitant]
     Active Substance: PANTOPRAZOLE
     Dates: start: 20220408, end: 20220408
  20. POTASSIUM CHLORIDE [Concomitant]
     Active Substance: POTASSIUM CHLORIDE
     Dates: start: 20220406, end: 20220406
  21. POTASSIUM PHOSPHATE [Concomitant]
     Active Substance: POTASSIUM PHOSPHATE
     Indication: Hypophosphataemia
     Dates: start: 20220406, end: 20220406
  22. PREDNISONE [Concomitant]
     Active Substance: PREDNISONE
     Indication: Laryngeal oedema
     Dates: start: 20220408
  23. PROPOFOL [Concomitant]
     Active Substance: PROPOFOL
     Indication: Sedation
     Dates: start: 20220408, end: 20220408
  24. ROCURONIUM [Concomitant]
     Active Substance: ROCURONIUM BROMIDE
     Indication: Sedation
     Dates: start: 20220408, end: 20220408
  25. VANCOMYCIN [Concomitant]
     Active Substance: VANCOMYCIN
     Indication: Sepsis
     Dates: start: 20220405, end: 20220405
  26. VERSED [Concomitant]
     Active Substance: MIDAZOLAM HYDROCHLORIDE
     Indication: Sedation
     Dates: start: 20220408, end: 20220408
  27. SHINGRIX [Concomitant]
     Active Substance: RECOMBINANT VARICELLA ZOSTER VIRUS (VZV) GLYCOPROTEIN E
     Indication: Immunisation
     Dates: start: 20220315, end: 20220315

REACTIONS (3)
  - Delirium [Recovered/Resolved]
  - Fall [Recovered/Resolved]
  - Laryngeal oedema [Recovered/Resolved]

NARRATIVE: CASE EVENT DATE: 20220404
